FAERS Safety Report 11854084 (Version 1)
Quarter: 2015Q4

REPORT INFORMATION
  Report Type: Spontaneous
  Country: US (occurrence: US)
  Receive Date: 20151219
  Receipt Date: 20151219
  Transmission Date: 20160305
  Serious: No
  Sender: FDA-Public Use
  Company Number: US-BAUSCH-BL-2015-022343

PATIENT
  Sex: Female

DRUGS (4)
  1. XENAZINE [Suspect]
     Active Substance: TETRABENAZINE
     Route: 048
  2. XENAZINE [Suspect]
     Active Substance: TETRABENAZINE
     Dosage: 12.5MG QAM, 12.5MG QPM AND 25MG QHS
     Route: 048
     Dates: start: 20151001
  3. XENAZINE [Suspect]
     Active Substance: TETRABENAZINE
     Indication: HUNTINGTON^S DISEASE
     Dosage: ONE TABLET IN THE MORNING AND AFTERNOON, AND TWO TABLETS AT NIGHT.
     Route: 048
     Dates: start: 20150728
  4. XENAZINE [Suspect]
     Active Substance: TETRABENAZINE
     Route: 048

REACTIONS (3)
  - Incorrect dose administered [Unknown]
  - No adverse event [Unknown]
  - Prescribed overdose [Unknown]
